FAERS Safety Report 6653553-7 (Version None)
Quarter: 2010Q1

REPORT INFORMATION
  Report Type: 
  Country: None (occurrence: None)
  Receive Date: 20100326
  Receipt Date: 20100315
  Transmission Date: 20100710
  Serious: Yes (Other)
  Sender: FDA-Public Use
  Company Number: TR-ELI_LILLY_AND_COMPANY-TR201003005871

PATIENT
  Age: 28 Year
  Sex: Female

DRUGS (6)
  1. HUMULIN R [Suspect]
     Indication: GESTATIONAL DIABETES
     Dosage: 2 IU, EACH MORNING
     Route: 058
     Dates: start: 20090801
  2. HUMULIN R [Suspect]
     Dosage: 2 IU, EACH NOON
     Route: 058
     Dates: start: 20090801
  3. HUMULIN R [Suspect]
     Dosage: 2 IU, EACH EVENING
     Route: 058
     Dates: start: 20090801
  4. HUMULIN N [Suspect]
     Indication: GESTATIONAL DIABETES
     Dosage: 6 U, DAILY (1/D)
     Route: 058
     Dates: start: 20090801
  5. IRON [Concomitant]
     Indication: MINERAL SUPPLEMENTATION
     Dosage: UNK, 2/D
     Dates: end: 20100117
  6. VITAMINS [Concomitant]
     Dosage: UNK, 3/D
     Dates: end: 20100117

REACTIONS (2)
  - DRUG EXPOSURE DURING PREGNANCY [None]
  - THREATENED LABOUR [None]
